FAERS Safety Report 5954108-X (Version None)
Quarter: 2008Q4

REPORT INFORMATION
  Report Type: 
  Country: None (occurrence: None)
  Receive Date: 20081114
  Receipt Date: 20081106
  Transmission Date: 20090506
  Serious: Yes (Death, Other)
  Sender: FDA-Public Use
  Company Number: AU-ABBOTT-08P-008-0452886-00

PATIENT
  Sex: Male

DRUGS (11)
  1. KLACID [Suspect]
     Indication: INFECTION
     Dates: start: 20070612, end: 20070618
  2. CANDESARTAN CILEXETIL [Suspect]
     Indication: DRUG USE FOR UNKNOWN INDICATION
     Dosage: DAILY
     Route: 048
  3. COLCHICINE [Suspect]
     Indication: GOUT
     Dosage: DAILY
     Route: 048
     Dates: start: 20070601, end: 20070621
  4. COLCHICINE [Suspect]
     Route: 048
  5. AZITHROMYCIN [Suspect]
     Indication: SEPSIS
     Dates: start: 20070623, end: 20070623
  6. FUROSEMIDE [Suspect]
     Indication: DRUG USE FOR UNKNOWN INDICATION
     Dosage: DAILY
  7. LISINOPRIL [Suspect]
     Indication: DRUG USE FOR UNKNOWN INDICATION
     Dosage: DAILY
     Route: 048
  8. AMLODIPINE [Concomitant]
     Indication: ESSENTIAL HYPERTENSION
  9. CANDESARTAN W/HYDROCHLOROTHIAZIDE [Concomitant]
     Indication: URINE ANALYSIS ABNORMAL
  10. FUROSEMIDE [Concomitant]
     Indication: GLOMERULONEPHRITIS CHRONIC
  11. LISINOPRIL [Concomitant]
     Indication: ESSENTIAL HYPERTENSION

REACTIONS (7)
  - BONE MARROW FAILURE [None]
  - DRUG INTERACTION [None]
  - DRUG TOXICITY [None]
  - MULTI-ORGAN FAILURE [None]
  - NEUTROPENIC SEPSIS [None]
  - PANCYTOPENIA [None]
  - RENAL FAILURE ACUTE [None]
